FAERS Safety Report 14635241 (Version 1)
Quarter: 2018Q1

REPORT INFORMATION
  Report Type: Spontaneous
  Country: GB (occurrence: GB)
  Receive Date: 20180314
  Receipt Date: 20180314
  Transmission Date: 20180509
  Serious: Yes (Other)
  Sender: FDA-Public Use
  Company Number: GB-GLAXOSMITHKLINE-GB2018039683

PATIENT
  Age: 65 Year
  Sex: Female
  Weight: 37 kg

DRUGS (2)
  1. RELVAR ELLIPTA [Suspect]
     Active Substance: FLUTICASONE FUROATE\VILANTEROL TRIFENATATE
     Indication: CHRONIC OBSTRUCTIVE PULMONARY DISEASE
     Dosage: UNK
     Route: 055
  2. INCRUSE ELLIPTA [Concomitant]
     Active Substance: UMECLIDINIUM BROMIDE
     Indication: CHRONIC OBSTRUCTIVE PULMONARY DISEASE
     Dosage: 55 ?G, QD
     Route: 055
     Dates: start: 201704, end: 201801

REACTIONS (4)
  - Lethargy [Unknown]
  - Jaundice [Unknown]
  - Malaise [Unknown]
  - Liver injury [Unknown]

NARRATIVE: CASE EVENT DATE: 201704
